FAERS Safety Report 15696259 (Version 2)
Quarter: 2019Q1

REPORT INFORMATION
  Report Type: Spontaneous
  Country: US (occurrence: US)
  Receive Date: 20181206
  Receipt Date: 20190304
  Transmission Date: 20190417
  Serious: Yes (Death, Other)
  Sender: FDA-Public Use
  Company Number: PHEH2018US051578

PATIENT
  Sex: Female

DRUGS (1)
  1. TASIGNA [Suspect]
     Active Substance: NILOTINIB
     Indication: CHRONIC MYELOID LEUKAEMIA
     Dosage: 200 MG, BID
     Route: 048
     Dates: start: 2013

REACTIONS (32)
  - Decubitus ulcer [Unknown]
  - Peripheral vascular disorder [Unknown]
  - Death [Fatal]
  - Acute myocardial infarction [Unknown]
  - Atrial fibrillation [Unknown]
  - Dyspnoea [Unknown]
  - Dry gangrene [Unknown]
  - Oedema peripheral [Unknown]
  - Peripheral arterial occlusive disease [Unknown]
  - Goitre [Unknown]
  - Iron deficiency anaemia [Unknown]
  - Intermittent claudication [Unknown]
  - Pleural effusion [Unknown]
  - Cellulitis [Unknown]
  - Thrombosis [Unknown]
  - Hepatocellular injury [Unknown]
  - Jaundice [Unknown]
  - End stage renal disease [Unknown]
  - Pulmonary congestion [Unknown]
  - Cardiac failure congestive [Unknown]
  - Pneumonia [Unknown]
  - Sepsis [Unknown]
  - Cardiomegaly [Unknown]
  - Lung consolidation [Unknown]
  - Hypoglycaemia [Unknown]
  - Hyperparathyroidism [Unknown]
  - Respiratory distress [Unknown]
  - Acute kidney injury [Unknown]
  - Metabolic acidosis [Unknown]
  - Urinary tract infection [Unknown]
  - Respiratory failure [Unknown]
  - Asthenia [Unknown]
